FAERS Safety Report 17388020 (Version 2)
Quarter: 2020Q1

REPORT INFORMATION
  Report Type: Spontaneous
  Country: CZ (occurrence: CZ)
  Receive Date: 20200207
  Receipt Date: 20200305
  Transmission Date: 20200409
  Serious: Yes (Death, Life-Threatening, Other)
  Sender: FDA-Public Use
  Company Number: CZ-SA-2020SA030023

PATIENT
  Sex: Male

DRUGS (1)
  1. LEFLUNOMIDE. [Suspect]
     Active Substance: LEFLUNOMIDE
     Indication: IMMUNOMODULATORY THERAPY
     Route: 048

REACTIONS (2)
  - Respiratory tract infection [Fatal]
  - Pulmonary alveolar haemorrhage [Unknown]
